FAERS Safety Report 4435417-2 (Version None)
Quarter: 2004Q3

REPORT INFORMATION
  Report Type: 
  Country: None (occurrence: None)
  Receive Date: 20040826
  Receipt Date: 20040813
  Transmission Date: 20050211
  Serious: Yes (Hospitalization)
  Sender: FDA-Public Use
  Company Number: 2001068493GB

PATIENT
  Age: 71 Year
  Sex: Female

DRUGS (8)
  1. CAMPTOSAR [Suspect]
     Indication: COLORECTAL CANCER
     Dosage: 153 MG, CYCLIC Q 2 WEEKS, IV
     Route: 042
     Dates: start: 20010730, end: 20010730
  2. CAMPTOSAR [Suspect]
     Indication: COLORECTAL CANCER
     Dosage: 153 MG, CYCLIC Q 2 WEEKS, IV
     Route: 042
     Dates: start: 20010813, end: 20010813
  3. FLUOROURACIL [Suspect]
     Indication: COLORECTAL CANCER
     Dosage: CYCLIC
     Dates: start: 20010730, end: 20010731
  4. FLUOROURACIL [Suspect]
     Indication: COLORECTAL CANCER
     Dosage: CYCLIC
     Dates: start: 20010813, end: 20010814
  5. OMEPRAZOLE [Concomitant]
  6. WARFARIN SODIUM [Concomitant]
  7. TRAMADOL HCL [Concomitant]
  8. CORTICOSTEROIDS [Concomitant]

REACTIONS (10)
  - ARTHRALGIA [None]
  - ASTHENIA [None]
  - BACK PAIN [None]
  - CARCINOMA [None]
  - LIPOMA [None]
  - METASTATIC NEOPLASM [None]
  - NEUROPATHIC PAIN [None]
  - PAIN IN EXTREMITY [None]
  - PERICARDIAL DISEASE [None]
  - SPINAL CORD COMPRESSION [None]
